FAERS Safety Report 21812195 (Version 1)
Quarter: 2023Q1

REPORT INFORMATION
  Report Type: Spontaneous
  Country: US (occurrence: None)
  Receive Date: 20230103
  Receipt Date: 20230103
  Transmission Date: 20230418
  Serious: Yes (unspecified)
  Sender: FDA-Public Use
  Company Number: None

PATIENT
  Age: 43 Year
  Sex: Female
  Weight: 47.63 kg

DRUGS (2)
  1. SUBOXONE [Suspect]
     Active Substance: BUPRENORPHINE HYDROCHLORIDE\NALOXONE HYDROCHLORIDE
     Indication: Drug use disorder
     Dosage: 8-2MG TABLET  TWO TIMES DAILY SUBLINGUAL
     Route: 060
     Dates: start: 20190903, end: 20210330
  2. BUPRENORPHINE [Suspect]
     Active Substance: BUPRENORPHINE
     Indication: Drug use disorder
     Dosage: 8MG TABLET 2 TABS DAILY SUBLINGUAL
     Route: 060
     Dates: start: 20210330

REACTIONS (4)
  - Bruxism [None]
  - Tooth fracture [None]
  - Visual impairment [None]
  - Skin disorder [None]

NARRATIVE: CASE EVENT DATE: 20210330
